FAERS Safety Report 4761943-2 (Version None)
Quarter: 2005Q3

REPORT INFORMATION
  Report Type: 
  Country: None (occurrence: None)
  Receive Date: 20050831
  Receipt Date: 20050519
  Transmission Date: 20060218
  Serious: No
  Sender: FDA-Public Use
  Company Number: PHEH2005US05721

PATIENT
  Age: 80 Year
  Sex: Male

DRUGS (1)
  1. ENABLEX (DARIFENACIN HYDROBROMIDE) TABLET, 15 MG [Suspect]
     Indication: HYPERTONIC BLADDER
     Dosage: 15 MG, QD
     Dates: start: 20050501

REACTIONS (1)
  - HEADACHE [None]
